FAERS Safety Report 17547495 (Version 1)
Quarter: 2020Q1

REPORT INFORMATION
  Report Type: Spontaneous
  Country: US (occurrence: US)
  Receive Date: 20200316
  Receipt Date: 20200316
  Transmission Date: 20200409
  Serious: No
  Sender: FDA-Public Use
  Company Number: US-KVK-TECH, INC-2081679

PATIENT
  Sex: Female

DRUGS (1)
  1. HYDROCODONE BITARTRATE AND HOMATROPINE METHYLBROMIDE [Suspect]
     Active Substance: HOMATROPINE METHYLBROMIDE\HYDROCODONE BITARTRATE
     Indication: PRODUCT USED FOR UNKNOWN INDICATION
     Route: 065

REACTIONS (1)
  - Hypersensitivity [Unknown]
